FAERS Safety Report 5427032-9 (Version None)
Quarter: 2007Q3

REPORT INFORMATION
  Report Type: 
  Country: None (occurrence: None)
  Receive Date: 20070824
  Receipt Date: 20070824
  Transmission Date: 20080115
  Serious: Yes (Other)
  Sender: FDA-Public Use
  Company Number: None

PATIENT
  Age: 42 Year
  Sex: Female
  Weight: 60 kg

DRUGS (2)
  1. OPTIMARK [Suspect]
     Indication: DIZZINESS
     Dosage: 10CC ONCE IV
     Route: 042
     Dates: start: 20070607
  2. OPTIMARK [Suspect]
     Indication: HEADACHE
     Dosage: 10CC ONCE IV
     Route: 042
     Dates: start: 20070607

REACTIONS (4)
  - DIZZINESS [None]
  - HEADACHE [None]
  - JOINT STIFFNESS [None]
  - NEPHROGENIC SYSTEMIC FIBROSIS [None]
